FAERS Safety Report 11858992 (Version 1)
Quarter: 2015Q4

REPORT INFORMATION
  Report Type: Spontaneous
  Country: JP (occurrence: JP)
  Receive Date: 20151222
  Receipt Date: 20151222
  Transmission Date: 20160305
  Serious: Yes (Life-Threatening)
  Sender: FDA-Public Use
  Company Number: JP-TAKEDA-2015TJP018179

PATIENT
  Age: 85 Year
  Sex: Male
  Weight: 50 kg

DRUGS (11)
  1. PARIET [Concomitant]
     Active Substance: RABEPRAZOLE SODIUM
     Indication: GASTROOESOPHAGEAL REFLUX DISEASE
     Dosage: 10 MG, QD
     Route: 048
     Dates: start: 20101021
  2. ADEFURONIC [Concomitant]
     Active Substance: DICLOFENAC SODIUM
     Indication: SCIATICA
     Dosage: 50 MG, QD
     Route: 054
     Dates: start: 20150908, end: 20150914
  3. LYRICA [Concomitant]
     Active Substance: PREGABALIN
     Dosage: 25 MG, BID
     Route: 048
     Dates: start: 20150910, end: 20150914
  4. MAGNESIUM OXIDE. [Concomitant]
     Active Substance: MAGNESIUM OXIDE
     Indication: CONSTIPATION
     Dosage: 660 MG, TID
     Route: 048
     Dates: start: 20131016
  5. NEUROTROPIN                        /06251301/ [Concomitant]
     Indication: SCIATICA
     Dosage: 4 IU, BID
     Route: 048
     Dates: start: 20150908, end: 20150914
  6. ROZEREM [Suspect]
     Active Substance: RAMELTEON
     Indication: INSOMNIA
     Dosage: 8 MG, QD
     Route: 048
     Dates: start: 20101004, end: 20150914
  7. REFLEX                             /01293201/ [Suspect]
     Active Substance: MIRTAZAPINE
     Indication: DEPRESSION
     Dosage: 30 MG, QD
     Route: 048
     Dates: start: 20111027, end: 20150914
  8. LORCAM [Concomitant]
     Active Substance: LORNOXICAM
     Indication: SCIATICA
     Dosage: 4 MG, TID
     Route: 048
     Dates: start: 20150908, end: 20150914
  9. NAFTOPIDIL [Concomitant]
     Active Substance: NAFTOPIDIL
     Indication: BENIGN PROSTATIC HYPERPLASIA
     Dosage: 50 MG, QD
     Route: 048
     Dates: start: 20150908
  10. TRIAZOLAM. [Suspect]
     Active Substance: TRIAZOLAM
     Indication: INSOMNIA
     Dosage: 0.25 MG, QD
     Route: 048
     Dates: start: 20140318, end: 20150914
  11. LYRICA [Concomitant]
     Active Substance: PREGABALIN
     Indication: NEURALGIA
     Dosage: 25 MG, QD
     Route: 048
     Dates: start: 20150908, end: 20150909

REACTIONS (2)
  - Hypoglycaemia [Recovered/Resolved]
  - Dehydration [Unknown]

NARRATIVE: CASE EVENT DATE: 20150914
